FAERS Safety Report 9306551 (Version 1)
Quarter: 2013Q2

REPORT INFORMATION
  Report Type: Spontaneous
  Country: US (occurrence: US)
  Receive Date: 20130523
  Receipt Date: 20130523
  Transmission Date: 20140414
  Serious: Yes (Hospitalization)
  Sender: FDA-Public Use
  Company Number: US-AMGEN-USASP2013036182

PATIENT
  Sex: Female

DRUGS (3)
  1. NEULASTA [Suspect]
     Indication: VAGINAL CANCER
     Dosage: UNK
  2. NEULASTA [Suspect]
     Indication: CHEMOTHERAPY
  3. CHEMOTHERAPEUTICS [Concomitant]
     Indication: VAGINAL CANCER
     Dosage: UNK UNK, QWK

REACTIONS (1)
  - Tachycardia [Unknown]
